FAERS Safety Report 19473920 (Version 1)
Quarter: 2021Q2

REPORT INFORMATION
  Report Type: Spontaneous
  Country: AT (occurrence: AT)
  Receive Date: 20210629
  Receipt Date: 20210629
  Transmission Date: 20210717
  Serious: Yes (Other)
  Sender: FDA-Public Use
  Company Number: AT-PFIZER INC-2021697275

PATIENT
  Age: 76 Year
  Sex: Female

DRUGS (2)
  1. INLYTA [Suspect]
     Active Substance: AXITINIB
     Indication: METASTATIC RENAL CELL CARCINOMA
     Dosage: UNK
  2. KEYTRUDA [Suspect]
     Active Substance: PEMBROLIZUMAB
     Indication: METASTATIC RENAL CELL CARCINOMA
     Dosage: UNK
     Dates: start: 20200504

REACTIONS (9)
  - Kidney infection [Unknown]
  - Eosinophilia [Recovering/Resolving]
  - Proteinuria [Recovering/Resolving]
  - Off label use [Unknown]
  - Haematuria [Recovering/Resolving]
  - Tubulointerstitial nephritis [Recovering/Resolving]
  - Leukocyturia [Recovering/Resolving]
  - Nephritis allergic [Unknown]
  - Urinary sediment abnormal [Recovering/Resolving]

NARRATIVE: CASE EVENT DATE: 20200706
